FAERS Safety Report 22043709 (Version 1)
Quarter: 2023Q1

REPORT INFORMATION
  Report Type: Spontaneous
  Country: CO (occurrence: CO)
  Receive Date: 20230228
  Receipt Date: 20230228
  Transmission Date: 20230418
  Serious: Yes (Death, Hospitalization, Other)
  Sender: FDA-Public Use
  Company Number: CO-BAXTER-2023BAX013069

PATIENT
  Age: 72 Year
  Sex: Male

DRUGS (5)
  1. DIANEAL PD-2 WITH DEXTROSE [Suspect]
     Active Substance: CALCIUM CHLORIDE\DEXTROSE\MAGNESIUM CHLORIDE\SODIUM CHLORIDE\SODIUM LACTATE
     Indication: Peritoneal dialysis
     Dosage: 2L, 4 TIMES PER DAY
     Route: 033
     Dates: start: 201911
  2. CARVEDILOL [Concomitant]
     Active Substance: CARVEDILOL
     Route: 065
  3. ERYTHROPOIETIN [Concomitant]
     Active Substance: ERYTHROPOIETIN
     Route: 065
  4. GEMFIBROZIL [Concomitant]
     Active Substance: GEMFIBROZIL
     Route: 065
  5. VALSARTAN [Concomitant]
     Active Substance: VALSARTAN
     Route: 065

REACTIONS (2)
  - Acute myocardial infarction [Fatal]
  - Chest pain [Fatal]

NARRATIVE: CASE EVENT DATE: 20230204
